FAERS Safety Report 13319609 (Version 7)
Quarter: 2018Q3

REPORT INFORMATION
  Report Type: Report from Study
  Country: None (occurrence: US)
  Receive Date: 20170309
  Receipt Date: 20180710
  Transmission Date: 20181010
  Serious: Yes (Other)
  Sender: FDA-Public Use
  Company Number: US-ABBVIE-17K-163-1892485-00

PATIENT
  Age: 37 Year
  Sex: Female
  Weight: 68.1 kg

DRUGS (7)
  1. HUMIRA [Suspect]
     Active Substance: ADALIMUMAB
     Indication: COLITIS ULCERATIVE
     Route: 058
     Dates: start: 201408, end: 201408
  2. HUMIRA [Suspect]
     Active Substance: ADALIMUMAB
     Dosage: 2 WEEK LATER
     Route: 058
     Dates: start: 2014
  3. HUMIRA [Suspect]
     Active Substance: ADALIMUMAB
     Route: 058
     Dates: start: 201408, end: 201408
  4. HUMIRA [Suspect]
     Active Substance: ADALIMUMAB
     Dosage: ON AND OFF HUMIRA
     Route: 058
     Dates: end: 2017
  5. PROBIOTIC [Concomitant]
     Active Substance: PROBIOTICS NOS
     Indication: PRODUCT USED FOR UNKNOWN INDICATION
  6. HUMIRA [Suspect]
     Active Substance: ADALIMUMAB
     Route: 058
     Dates: start: 201707
  7. PRENATAL VITAMINS [Concomitant]
     Active Substance: VITAMINS
     Indication: PRODUCT USED FOR UNKNOWN INDICATION

REACTIONS (11)
  - Live birth [Unknown]
  - Pelvic pain [Recovering/Resolving]
  - Therapeutic response shortened [Unknown]
  - Vitamin D decreased [Unknown]
  - Diarrhoea [Not Recovered/Not Resolved]
  - Urinary tract infection [Recovered/Resolved]
  - Colitis ulcerative [Unknown]
  - Premature separation of placenta [Not Recovered/Not Resolved]
  - Exposure during pregnancy [Unknown]
  - Fatigue [Unknown]
  - Vomiting in pregnancy [Unknown]

NARRATIVE: CASE EVENT DATE: 2017
